FAERS Safety Report 7502291-7 (Version None)
Quarter: 2011Q2

REPORT INFORMATION
  Report Type: 
  Country: None (occurrence: None)
  Receive Date: 20110525
  Receipt Date: 20100116
  Transmission Date: 20111010
  Serious: Yes (Death, Hospitalization, Other)
  Sender: FDA-Public Use
  Company Number: US-BAYER-201011425NA

PATIENT
  Age: 76 Year
  Sex: Male
  Weight: 92 kg

DRUGS (30)
  1. TRASYLOL [Suspect]
     Indication: CORONARY ARTERY BYPASS
     Dosage: 1 ML, ONCE, TEST DOSE
     Route: 042
     Dates: start: 20010327, end: 20010327
  2. LIDOCAINE [Concomitant]
     Dosage: 0.5 MG,Q5 TO10 MIN UP TO 3MG/KG
     Route: 042
  3. CEFUROXIME [Concomitant]
     Dosage: 1.5 G, UNK
     Route: 042
  4. PANCURONIUM BROMIDE [Concomitant]
  5. MAGNESIUM SULFATE [Concomitant]
  6. TERAZOSIN HCL [Concomitant]
     Dosage: 5 MG, HS
     Route: 048
  7. TRASYLOL [Suspect]
     Dosage: 200 ML, ONCE, LOADING DOSE
     Route: 042
     Dates: start: 20010327, end: 20010327
  8. LIDOCAINE [Concomitant]
     Indication: VENTRICULAR TACHYCARDIA
     Dosage: 100 MG, BOLUS, PRN
     Route: 042
  9. MORPHINE [Concomitant]
     Dosage: 2-5MG/Q2H
     Route: 042
  10. PROTAMINE SULFATE [Concomitant]
  11. CONTRAST MEDIA [Concomitant]
     Dosage: 100 ML, UNK
     Dates: start: 20010322
  12. ATORVASTATIN [Concomitant]
     Dosage: 20 MG, HS
     Route: 048
  13. LANSOPRAZOLE [Concomitant]
     Dosage: 15 MG, QD
     Route: 048
  14. DIPHENHYDRAMINE HCL [Concomitant]
  15. PROPOFOL [Concomitant]
  16. MIDAZOLAM HCL [Concomitant]
  17. TRASYLOL [Suspect]
     Dosage: 50 ML, Q1HR
     Route: 042
     Dates: start: 20010327, end: 20010327
  18. SODIUM BICARBONATE [Concomitant]
  19. HYDROCORTISONE [Concomitant]
  20. EPINEPHRINE [Concomitant]
     Route: 042
  21. LIDOCAINE [Concomitant]
     Indication: VENTRICULAR EXTRASYSTOLES
     Dosage: 2 MG, Q1MIN, PRN
     Route: 042
  22. NITROGLYCERIN [Concomitant]
     Indication: PAIN
     Dosage: DRIP
     Route: 042
  23. HEPARIN [Concomitant]
     Indication: COAGULOPATHY
     Dosage: DRIP
     Route: 042
  24. MILRINONE [Concomitant]
     Route: 042
  25. DOPAMINE HCL [Concomitant]
     Route: 042
  26. NOREPINEPHRINE BITARTRATE [Concomitant]
     Route: 042
  27. ACETYLSALICYLIC ACID SRT [Concomitant]
     Dosage: 325 MG, QD
     Route: 048
  28. METOPROLOL [Concomitant]
     Dosage: 25 MG, BID
     Route: 048
  29. NITROGLYCERIN [Concomitant]
     Indication: BLOOD PRESSURE ABNORMAL
  30. CALCIUM CHLORIDE [Concomitant]

REACTIONS (15)
  - DEATH [None]
  - CARDIAC DISORDER [None]
  - INJURY [None]
  - RENAL IMPAIRMENT [None]
  - ORGAN FAILURE [None]
  - ANHEDONIA [None]
  - CEREBROVASCULAR ACCIDENT [None]
  - FEAR [None]
  - MYOCARDIAL INFARCTION [None]
  - DEPRESSION [None]
  - RENAL INJURY [None]
  - UNEVALUABLE EVENT [None]
  - PAIN [None]
  - RENAL FAILURE [None]
  - ANXIETY [None]
